FAERS Safety Report 5257690-3 (Version None)
Quarter: 2007Q1

REPORT INFORMATION
  Report Type: 
  Country: None (occurrence: None)
  Receive Date: 20070302
  Receipt Date: 20070213
  Transmission Date: 20070707
  Serious: Yes (Hospitalization)
  Sender: FDA-Public Use
  Company Number: 15741

PATIENT
  Age: 40 Year
  Sex: Female
  Weight: 77 kg

DRUGS (6)
  1. DACARBAZINE [Suspect]
     Indication: MALIGNANT MELANOMA STAGE IV
     Dates: start: 20061211
  2. BOSENTAN 500 MG BID OR PLACEBO (CODE NOT BROKEN) [Suspect]
     Indication: MALIGNANT MELANOMA STAGE IV
     Dosage: 500 MG BID PO
     Route: 048
     Dates: start: 20061211
  3. DEXAMETHASONE [Concomitant]
  4. FENTANYL [Concomitant]
  5. FRUSEMIDE [Concomitant]
  6. SPIRONOLACTONE [Concomitant]

REACTIONS (1)
  - FEBRILE NEUTROPENIA [None]
